FAERS Safety Report 20832019 (Version 1)
Quarter: 2022Q2

REPORT INFORMATION
  Report Type: 
  Country: None (occurrence: None)
  Receive Date: 20220516
  Receipt Date: 20220516
  Transmission Date: 20220720
  Serious: No
  Sender: FDA-Public Use
  Company Number: DE-ROCHE-2552259

PATIENT
  Age: 32 Year

DRUGS (4)
  1. OCREVUS [Suspect]
     Active Substance: OCRELIZUMAB
     Dosage: ON 04/FEB/2021 THE OCRELIZUMAB MAINTENANCE INFUSION WAS ADMINISTERED.
     Dates: start: 20200123
  2. OCREVUS [Suspect]
     Active Substance: OCRELIZUMAB
     Dates: start: 20200123
  3. ASTRAZENECA COVID-19 VACCINE [Suspect]
     Active Substance: AZD-1222
     Dates: start: 20210212
  4. LEVOTHYROXINE SODIUM [Concomitant]
     Active Substance: LEVOTHYROXINE SODIUM

REACTIONS (9)
  - Headache [None]
  - Chills [None]
  - Pain in extremity [None]
  - COVID-19 [None]
  - Dyspnoea [None]
  - Gait disturbance [None]
  - Fall [None]
  - Haematoma [None]
  - Joint swelling [None]

NARRATIVE: CASE EVENT DATE: 20200124
